FAERS Safety Report 13903226 (Version 4)
Quarter: 2022Q3

REPORT INFORMATION
  Report Type: Spontaneous
  Country: JP (occurrence: JP)
  Receive Date: 20170824
  Receipt Date: 20220830
  Transmission Date: 20221027
  Serious: Yes (Death, Hospitalization)
  Sender: FDA-Public Use
  Company Number: JP-ABBVIE-17K-087-2080256-00

PATIENT
  Age: 75 Year
  Sex: Male

DRUGS (48)
  1. HUMIRA [Suspect]
     Active Substance: ADALIMUMAB
     Indication: Behcet^s syndrome
     Route: 058
     Dates: start: 20160502, end: 20160502
  2. HUMIRA [Suspect]
     Active Substance: ADALIMUMAB
     Route: 058
     Dates: start: 20160516, end: 20160516
  3. HUMIRA [Suspect]
     Active Substance: ADALIMUMAB
     Route: 058
     Dates: start: 20160530, end: 20161227
  4. HUMIRA [Suspect]
     Active Substance: ADALIMUMAB
     Route: 058
     Dates: start: 20170517, end: 20170517
  5. REMICADE [Suspect]
     Active Substance: INFLIXIMAB
     Indication: Behcet^s syndrome
     Route: 042
     Dates: start: 20170117, end: 20170117
  6. REMICADE [Suspect]
     Active Substance: INFLIXIMAB
     Route: 042
     Dates: start: 20170131, end: 20170131
  7. REMICADE [Suspect]
     Active Substance: INFLIXIMAB
     Route: 042
     Dates: start: 20170228, end: 20170228
  8. NEORAL [Suspect]
     Active Substance: CYCLOSPORINE
     Indication: Behcet^s syndrome
     Route: 048
     Dates: start: 20170206, end: 20170212
  9. NEORAL [Suspect]
     Active Substance: CYCLOSPORINE
     Route: 048
     Dates: start: 20170213, end: 20170228
  10. NEORAL [Suspect]
     Active Substance: CYCLOSPORINE
     Route: 048
     Dates: start: 20170213, end: 20170228
  11. PROGRAF [Suspect]
     Active Substance: TACROLIMUS
     Indication: Behcet^s syndrome
     Route: 048
     Dates: start: 20170517, end: 20170522
  12. PROGRAF [Suspect]
     Active Substance: TACROLIMUS
     Route: 048
     Dates: start: 20170522, end: 20170531
  13. CIMZIA [Suspect]
     Active Substance: CERTOLIZUMAB PEGOL
     Indication: Behcet^s syndrome
     Route: 058
     Dates: start: 20170522, end: 20170522
  14. PREDONINE [Suspect]
     Active Substance: PREDNISOLONE
     Indication: Behcet^s syndrome
     Dosage: 5 TO 30 MG (INCLUDED MPSL PULSE)
     Route: 048
     Dates: start: 2011, end: 20170111
  15. PREDONINE [Suspect]
     Active Substance: PREDNISOLONE
     Route: 042
     Dates: start: 20170224, end: 20170227
  16. PREDONINE [Suspect]
     Active Substance: PREDNISOLONE
     Route: 042
     Dates: start: 20170228, end: 20170308
  17. PREDONINE [Suspect]
     Active Substance: PREDNISOLONE
     Route: 042
     Dates: start: 20170309
  18. PREDONINE [Suspect]
     Active Substance: PREDNISOLONE
     Dosage: 5 TO 30 MG (INCLUDED MPSL PULSE)
     Route: 042
     Dates: start: 20170131, end: 20170223
  19. TRAMADOL [Suspect]
     Active Substance: TRAMADOL
     Indication: Behcet^s syndrome
     Route: 048
     Dates: start: 20170104, end: 20170117
  20. TRAMADOL [Suspect]
     Active Substance: TRAMADOL
     Route: 030
     Dates: start: 20170110, end: 20170116
  21. MIZORIBINE [Suspect]
     Active Substance: MIZORIBINE
     Indication: Behcet^s syndrome
     Route: 048
     Dates: start: 20170503, end: 20170517
  22. ACETAMINOPHEN [Concomitant]
     Active Substance: ACETAMINOPHEN
     Indication: Behcet^s syndrome
     Route: 042
     Dates: start: 20170124
  23. HYDROXYZINE HYDROCHLORIDE [Concomitant]
     Active Substance: HYDROXYZINE HYDROCHLORIDE
     Indication: Behcet^s syndrome
     Route: 042
     Dates: start: 20170127, end: 20170131
  24. CLOMIPRAMINE HYDROCHLORIDE [Concomitant]
     Active Substance: CLOMIPRAMINE HYDROCHLORIDE
     Indication: Behcet^s syndrome
     Route: 042
     Dates: start: 20170127, end: 20170226
  25. TAZOBACTAM [Concomitant]
     Active Substance: TAZOBACTAM
     Indication: Prophylaxis
     Route: 042
     Dates: start: 20170316, end: 20170321
  26. FAMOTIDINE [Concomitant]
     Active Substance: FAMOTIDINE
     Indication: Prophylaxis
     Route: 042
     Dates: start: 20170317, end: 20170324
  27. OMEPRAZOLE [Concomitant]
     Active Substance: OMEPRAZOLE
     Indication: Prophylaxis
     Route: 042
     Dates: start: 20170118, end: 20170227
  28. OMEPRAZOLE [Concomitant]
     Active Substance: OMEPRAZOLE
     Route: 042
     Dates: start: 20170325, end: 20170405
  29. VITAMIN E NICOTINATE [Concomitant]
     Indication: Product used for unknown indication
     Route: 048
  30. REBAMIPIDE [Concomitant]
     Active Substance: REBAMIPIDE
     Indication: Prophylaxis
     Route: 048
     Dates: start: 20170117
  31. LANSOPRAZOLE [Concomitant]
     Active Substance: LANSOPRAZOLE
     Indication: Prophylaxis
     Route: 048
     Dates: end: 20170117
  32. LANSOPRAZOLE [Concomitant]
     Active Substance: LANSOPRAZOLE
     Route: 048
     Dates: start: 20170228, end: 20170316
  33. POLAPREZINC [Concomitant]
     Active Substance: POLAPREZINC
     Indication: Behcet^s syndrome
     Route: 048
     Dates: end: 20170112
  34. MOSAPRIDE CITRATE [Concomitant]
     Active Substance: MOSAPRIDE CITRATE
     Indication: Prophylaxis
     Route: 048
     Dates: start: 20170104, end: 20170110
  35. CEFMETAZOLE SODIUM [Concomitant]
     Active Substance: CEFMETAZOLE SODIUM
     Indication: Behcet^s syndrome
     Route: 042
     Dates: start: 20170110, end: 20170116
  36. BETAMETHASONE [Concomitant]
     Active Substance: BETAMETHASONE
     Indication: Behcet^s syndrome
     Route: 048
     Dates: start: 20170522
  37. MESALAMINE [Concomitant]
     Active Substance: MESALAMINE
     Indication: Behcet^s syndrome
     Route: 048
     Dates: start: 20170117
  38. MESALAMINE [Concomitant]
     Active Substance: MESALAMINE
     Route: 048
     Dates: start: 20170307, end: 20170316
  39. ATOVAQUONE [Concomitant]
     Active Substance: ATOVAQUONE
     Indication: Prophylaxis
     Route: 048
     Dates: start: 20170308, end: 20170310
  40. COLCHICINE [Concomitant]
     Active Substance: COLCHICINE
     Indication: Behcet^s syndrome
     Route: 048
     Dates: start: 20160516
  41. METHYLPREDNISOLONE SODIUM SUCCINATE [Concomitant]
     Active Substance: METHYLPREDNISOLONE SODIUM SUCCINATE
     Indication: Behcet^s syndrome
     Route: 042
     Dates: start: 20170111, end: 20170113
  42. DEXAMETHASONE [Concomitant]
     Active Substance: DEXAMETHASONE
     Indication: Product used for unknown indication
  43. HYDROCORTISONE [Concomitant]
     Active Substance: HYDROCORTISONE
     Indication: Product used for unknown indication
  44. HYDROCORTISONE [Concomitant]
     Active Substance: HYDROCORTISONE
  45. HYDROCORTISONE [Concomitant]
     Active Substance: HYDROCORTISONE
  46. PIPERACILLIN [Concomitant]
     Active Substance: PIPERACILLIN
     Indication: Product used for unknown indication
  47. COLCHICINE [Concomitant]
     Active Substance: COLCHICINE
     Indication: Behcet^s syndrome
  48. MESALAMINE [Concomitant]
     Active Substance: MESALAMINE
     Indication: Behcet^s syndrome

REACTIONS (4)
  - Renal infarct [Fatal]
  - Disseminated mucormycosis [Fatal]
  - Pyrexia [Not Recovered/Not Resolved]
  - Therapeutic response decreased [Unknown]

NARRATIVE: CASE EVENT DATE: 20170325
